FAERS Safety Report 15342130 (Version 1)
Quarter: 2018Q3

REPORT INFORMATION
  Report Type: Spontaneous
  Country: US (occurrence: US)
  Receive Date: 20180902
  Receipt Date: 20180902
  Transmission Date: 20181010
  Serious: No
  Sender: FDA-Public Use
  Company Number: US-JNJFOC-20180805355

PATIENT
  Sex: Male

DRUGS (2)
  1. TYLENOL [Suspect]
     Active Substance: ACETAMINOPHEN
     Indication: PRODUCT USED FOR UNKNOWN INDICATION
     Route: 055
  2. TYLENOL [Suspect]
     Active Substance: ACETAMINOPHEN
     Route: 055

REACTIONS (2)
  - Intentional product misuse [Unknown]
  - Incorrect route of drug administration [Unknown]
